FAERS Safety Report 8170773-3 (Version None)
Quarter: 2012Q1

REPORT INFORMATION
  Report Type: 
  Country: None (occurrence: None)
  Receive Date: 20120228
  Receipt Date: 20120225
  Transmission Date: 20120608
  Serious: No
  Sender: FDA-Public Use
  Company Number: US-PFIZER INC-2012050413

PATIENT
  Sex: Female

DRUGS (1)
  1. ADVIL PM [Suspect]
     Indication: PAIN
     Dosage: TWO 200/38 MG ORAL CAPLETS, 1X/DAY
     Route: 048
     Dates: start: 20120224, end: 20120225

REACTIONS (4)
  - MALAISE [None]
  - PAIN IN EXTREMITY [None]
  - DRUG INEFFECTIVE [None]
  - LIMB DISCOMFORT [None]
